FAERS Safety Report 20490666 (Version 1)
Quarter: 2022Q1

REPORT INFORMATION
  Report Type: Spontaneous
  Country: US (occurrence: None)
  Receive Date: 20220218
  Receipt Date: 20220218
  Transmission Date: 20220424
  Serious: Yes (Other)
  Sender: FDA-Public Use
  Company Number: None

PATIENT
  Age: 49 Year
  Sex: Male
  Weight: 273 kg

DRUGS (1)
  1. ENOXAPARIN [Suspect]
     Active Substance: ENOXAPARIN

REACTIONS (4)
  - Injury associated with device [None]
  - Needle issue [None]
  - Device failure [None]
  - Device malfunction [None]

NARRATIVE: CASE EVENT DATE: 20220116
